FAERS Safety Report 13806759 (Version 2)
Quarter: 2018Q1

REPORT INFORMATION
  Report Type: Report from Study
  Country: US (occurrence: US)
  Receive Date: 20170728
  Receipt Date: 20180117
  Transmission Date: 20180508
  Serious: No
  Sender: FDA-Public Use
  Company Number: US-AMGEN-USASL2017064521

PATIENT
  Age: 74 Year
  Sex: Male
  Weight: 91.16 kg

DRUGS (2)
  1. REPATHA [Suspect]
     Active Substance: EVOLOCUMAB
     Indication: HYPERCHOLESTEROLAEMIA
     Dosage: 140 MG/ML, Q2WK (TWICE MONTHLY)
     Route: 065
     Dates: start: 20151211
  2. REPATHA [Suspect]
     Active Substance: EVOLOCUMAB
     Indication: BLOOD CHOLESTEROL INCREASED

REACTIONS (4)
  - Accidental exposure to product [Unknown]
  - Pain in extremity [Recovered/Resolved]
  - Wrong technique in product usage process [Unknown]
  - Drug dose omission [Unknown]

NARRATIVE: CASE EVENT DATE: 201704
